FAERS Safety Report 17956276 (Version 2)
Quarter: 2020Q4

REPORT INFORMATION
  Report Type: Report from Study
  Country: MX (occurrence: MX)
  Receive Date: 20200629
  Receipt Date: 20201007
  Transmission Date: 20210113
  Serious: Yes (Other)
  Sender: FDA-Public Use
  Company Number: NVSC2019MX056098

PATIENT
  Sex: Female
  Weight: 78 kg

DRUGS (5)
  1. LUCENTIS [Suspect]
     Active Substance: RANIBIZUMAB
     Indication: MACULAR OEDEMA
     Dosage: 0.5 MG, QMO
     Route: 047
     Dates: start: 20180615
  2. ARCOXIA [Concomitant]
     Active Substance: ETORICOXIB
     Indication: ARTHRALGIA
     Dosage: 1 DF, QD
     Route: 048
  3. LUCENTIS [Suspect]
     Active Substance: RANIBIZUMAB
     Indication: AQUEOUS HUMOUR LEAKAGE
     Dosage: 0.5 MG, QMO
     Route: 047
     Dates: start: 20191127
  4. PROPRANOLOL [Concomitant]
     Active Substance: PROPRANOLOL HYDROCHLORIDE
     Indication: BLOOD PRESSURE ABNORMAL
     Dosage: 1 DF, QD
     Route: 048
  5. TELMISARTAN. [Suspect]
     Active Substance: TELMISARTAN
     Indication: HYPOTENSION
     Dosage: 2 DF, QD (40 MG)
     Route: 048

REACTIONS (11)
  - Feeling abnormal [Unknown]
  - Malaise [Unknown]
  - Retinal disorder [Not Recovered/Not Resolved]
  - Deafness [Unknown]
  - Myopia [Not Recovered/Not Resolved]
  - Product use in unapproved indication [Unknown]
  - Weight increased [Not Recovered/Not Resolved]
  - Eye oedema [Recovering/Resolving]
  - Condition aggravated [Recovering/Resolving]
  - Vitreous floaters [Unknown]
  - Eye disorder [Not Recovered/Not Resolved]
